FAERS Safety Report 8385786-6 (Version None)
Quarter: 2012Q2

REPORT INFORMATION
  Report Type: 
  Country: None (occurrence: None)
  Receive Date: 20120523
  Receipt Date: 20120516
  Transmission Date: 20120825
  Serious: Yes (Other)
  Sender: FDA-Public Use
  Company Number: B0802511A

PATIENT

DRUGS (1)
  1. NARATRIPTAN [Suspect]
     Indication: PRODUCT USED FOR UNKNOWN INDICATION

REACTIONS (4)
  - OVERDOSE [None]
  - ANGINA PECTORIS [None]
  - HYPERTENSION [None]
  - POISONING [None]
